FAERS Safety Report 16366781 (Version 1)
Quarter: 2019Q2

REPORT INFORMATION
  Report Type: Spontaneous
  Country: US (occurrence: US)
  Receive Date: 20190422
  Receipt Date: 20190422
  Transmission Date: 20190711
  Serious: No
  Sender: FDA-Public Use
  Company Number: None

PATIENT
  Age: 60 Year
  Sex: Female

DRUGS (22)
  1. PROLIA [Concomitant]
     Active Substance: DENOSUMAB
  2. VITAMIN D [Concomitant]
     Active Substance: VITAMIN D NOS
  3. ASMANEX [Concomitant]
     Active Substance: MOMETASONE FUROATE
  4. VENTOLIN [Concomitant]
     Active Substance: ALBUTEROL SULFATE
  5. K-TAB [Concomitant]
     Active Substance: POTASSIUM CHLORIDE
  6. SYMBICORT [Concomitant]
     Active Substance: BUDESONIDE\FORMOTEROL FUMARATE DIHYDRATE
  7. ATORVASTATIN [Concomitant]
     Active Substance: ATORVASTATIN
  8. CALCIUM [Concomitant]
     Active Substance: CALCIUM
  9. HCTZ [Concomitant]
     Active Substance: HYDROCHLOROTHIAZIDE
  10. LISINOPRIL/HCTZ [Concomitant]
     Active Substance: HYDROCHLOROTHIAZIDE\LISINOPRIL
  11. HYOMAX [Concomitant]
     Active Substance: HYOSCYAMINE SULFATE
  12. TOPROL XL [Concomitant]
     Active Substance: METOPROLOL SUCCINATE
  13. ALBUTEROL. [Concomitant]
     Active Substance: ALBUTEROL
  14. TYLENOL [Concomitant]
     Active Substance: ACETAMINOPHEN
  15. HUMIRA [Suspect]
     Active Substance: ADALIMUMAB
     Indication: CROHN^S DISEASE
     Route: 058
     Dates: start: 20150909
  16. NORTRPITYLIN [Concomitant]
  17. VITAMIN E [Concomitant]
     Active Substance: .ALPHA.-TOCOPHEROL
  18. SPIRIVA [Concomitant]
     Active Substance: TIOTROPIUM BROMIDE MONOHYDRATE
  19. HUMIRA [Concomitant]
     Active Substance: ADALIMUMAB
  20. ROWASA [Concomitant]
     Active Substance: MESALAMINE
  21. METFORMIN [Concomitant]
     Active Substance: METFORMIN HYDROCHLORIDE
  22. METOPROLOL. [Concomitant]
     Active Substance: METOPROLOL

REACTIONS (1)
  - Surgery [None]

NARRATIVE: CASE EVENT DATE: 20190418
